FAERS Safety Report 22296404 (Version 1)
Quarter: 2023Q2

REPORT INFORMATION
  Report Type: Spontaneous
  Country: US (occurrence: US)
  Receive Date: 20230508
  Receipt Date: 20230508
  Transmission Date: 20230721
  Serious: No
  Sender: FDA-Public Use
  Company Number: US-GALDERMA-US2023005733

PATIENT

DRUGS (2)
  1. DIFFERIN GEL [Suspect]
     Active Substance: ADAPALENE
     Indication: Acne
     Dosage: 1 DOSAGE FORM
     Route: 061
     Dates: start: 20221230
  2. DIFFERIN GEL [Suspect]
     Active Substance: ADAPALENE
     Dosage: UNK

REACTIONS (3)
  - Skin hyperpigmentation [Unknown]
  - Acne [Unknown]
  - Drug ineffective [Unknown]
